FAERS Safety Report 6668776-0 (Version None)
Quarter: 2010Q2

REPORT INFORMATION
  Report Type: 
  Country: None (occurrence: None)
  Receive Date: 20100406
  Receipt Date: 20100331
  Transmission Date: 20101027
  Serious: Yes (Hospitalization)
  Sender: FDA-Public Use
  Company Number: US-SANOFI-AVENTIS-2010SA019352

PATIENT
  Age: 87 Year
  Sex: Male

DRUGS (10)
  1. PLAVIX [Suspect]
     Route: 048
     Dates: start: 20061102, end: 20090301
  2. PLAVIX [Suspect]
     Indication: THROMBOSIS PROPHYLAXIS
     Route: 048
     Dates: start: 20061102, end: 20090301
  3. PLAVIX [Suspect]
     Route: 048
     Dates: start: 20090301
  4. PLAVIX [Suspect]
     Route: 048
     Dates: start: 20090301
  5. METOPROLOL SUCCINATE [Suspect]
     Route: 065
     Dates: end: 20100328
  6. CITALOPRAM HYDROBROMIDE [Suspect]
     Route: 065
     Dates: start: 20100327, end: 20100328
  7. ASPIRIN [Concomitant]
     Route: 048
     Dates: start: 20090301
  8. ENALAPRIL MALEATE [Suspect]
     Route: 048
  9. SIMVASTATIN [Concomitant]
  10. GABAPENTIN [Concomitant]

REACTIONS (5)
  - BACK PAIN [None]
  - DEHYDRATION [None]
  - MUSCLE SPASMS [None]
  - SYNCOPE [None]
  - UNDERDOSE [None]
